FAERS Safety Report 19737521 (Version 1)
Quarter: 2021Q3

REPORT INFORMATION
  Report Type: Spontaneous
  Country: US (occurrence: US)
  Receive Date: 20210820
  Receipt Date: 20210820
  Transmission Date: 20211014
  Serious: Yes (Hospitalization)
  Sender: FDA-Public Use
  Company Number: None

PATIENT
  Age: 46 Year
  Sex: Female

DRUGS (1)
  1. STELARA [Suspect]
     Active Substance: USTEKINUMAB
     Indication: CROHN^S DISEASE
     Dosage: 90MG :EVERY 8 WEEKS;?
     Route: 058
     Dates: start: 20190610

REACTIONS (4)
  - Malnutrition [None]
  - Vomiting [None]
  - Pain [None]
  - Nausea [None]

NARRATIVE: CASE EVENT DATE: 20201208
